FAERS Safety Report 20592044 (Version 1)
Quarter: 2022Q1

REPORT INFORMATION
  Report Type: Report from Study
  Country: US (occurrence: US)
  Receive Date: 20220314
  Receipt Date: 20220314
  Transmission Date: 20220423
  Serious: Yes (Hospitalization, Other)
  Sender: FDA-Public Use
  Company Number: US-SEATTLE GENETICS-2022SGN02184

PATIENT
  Age: 37 Year
  Sex: Female

DRUGS (1)
  1. TUCATINIB [Suspect]
     Active Substance: TUCATINIB
     Indication: Breast cancer
     Route: 065

REACTIONS (3)
  - Urinary tract infection [Recovering/Resolving]
  - Kidney infection [Recovering/Resolving]
  - Full blood count abnormal [Recovering/Resolving]

NARRATIVE: CASE EVENT DATE: 20220201
